FAERS Safety Report 9125997 (Version 1)
Quarter: 2013Q1

REPORT INFORMATION
  Report Type: Spontaneous
  Country: US (occurrence: US)
  Receive Date: 20130121
  Receipt Date: 20130121
  Transmission Date: 20140127
  Serious: Yes (Other)
  Sender: FDA-Public Use
  Company Number: US-AMGEN-USASP2013002479

PATIENT
  Age: 60 Year
  Sex: Female

DRUGS (3)
  1. ENBREL [Suspect]
     Indication: RHEUMATOID ARTHRITIS
     Dosage: 50 MG, QWK
     Dates: start: 20040805
  2. METHOTREXATE [Concomitant]
     Dosage: 2.5 MG, QWK
  3. SIMPONI [Concomitant]
     Dosage: UNK

REACTIONS (3)
  - Hip fracture [Recovered/Resolved]
  - Fall [Recovered/Resolved]
  - Injection site pain [Not Recovered/Not Resolved]
